FAERS Safety Report 5623655-2 (Version None)
Quarter: 2008Q1

REPORT INFORMATION
  Report Type: 
  Country: None (occurrence: None)
  Receive Date: 20080212
  Receipt Date: 20080131
  Transmission Date: 20080703
  Serious: Yes (Life-Threatening, Hospitalization)
  Sender: FDA-Public Use
  Company Number: GB-GENENTECH-253879

PATIENT
  Sex: Male
  Weight: 72 kg

DRUGS (7)
  1. MABTHERA [Suspect]
     Indication: NON-HODGKIN'S LYMPHOMA
     Dosage: 375 MG/M2, Q3W
     Route: 042
     Dates: start: 20070903
  2. XALACOM [Concomitant]
     Indication: DRUG USE FOR UNKNOWN INDICATION
  3. PRAVASTATIN SODIUM [Concomitant]
     Indication: DRUG USE FOR UNKNOWN INDICATION
  4. LYMECYCLINE [Concomitant]
     Indication: DRUG USE FOR UNKNOWN INDICATION
  5. LANSOPRAZOLE [Concomitant]
     Indication: DRUG USE FOR UNKNOWN INDICATION
     Dates: start: 20070115
  6. SENNA [Concomitant]
     Indication: DRUG USE FOR UNKNOWN INDICATION
  7. NOVOLOG MIX 70/30 [Concomitant]
     Indication: DRUG USE FOR UNKNOWN INDICATION

REACTIONS (7)
  - CHEST DISCOMFORT [None]
  - CHEST PAIN [None]
  - DYSPNOEA [None]
  - HYPOTENSION [None]
  - SYNCOPE VASOVAGAL [None]
  - URTICARIA [None]
  - VOMITING [None]
